FAERS Safety Report 7080112-7 (Version None)
Quarter: 2010Q4

REPORT INFORMATION
  Report Type: 
  Country: None (occurrence: None)
  Receive Date: 20101102
  Receipt Date: 20101021
  Transmission Date: 20110411
  Serious: Yes (Other)
  Sender: FDA-Public Use
  Company Number: PHHY2010JP64832

PATIENT
  Sex: Female
  Weight: 54 kg

DRUGS (10)
  1. ZOMETA [Suspect]
     Indication: METASTASES TO BONE
     Dosage: 4 MG, PER ADMINISTRATION
     Route: 041
     Dates: start: 20061013, end: 20091225
  2. FEMARA [Concomitant]
     Indication: BREAST CANCER
     Dosage: UNK
     Dates: start: 20090401, end: 20091225
  3. TAXOTERE [Concomitant]
     Indication: BREAST CANCER
     Dosage: UNK
     Dates: start: 20090428, end: 20091225
  4. PINORUBIN [Concomitant]
     Dosage: UNK
     Dates: start: 20061013, end: 20070425
  5. ENDOXAN [Concomitant]
     Dosage: UNK
     Dates: start: 20061013, end: 20070425
  6. FLUOROURACIL [Concomitant]
     Dosage: UNK
     Dates: start: 20061013, end: 20070425
  7. UFT [Concomitant]
     Dosage: 400 MG, UNK
     Route: 048
     Dates: start: 20060523, end: 20090424
  8. FARESTON [Concomitant]
     Dosage: 80 MG, UNK
     Route: 048
     Dates: start: 20061013, end: 20090427
  9. HYSRON [Concomitant]
     Dosage: 800 MG, UNK
     Route: 048
     Dates: start: 20091025
  10. HYSRON [Concomitant]
     Dosage: 400 MG, UNK
     Route: 048

REACTIONS (2)
  - ORAL PAIN [None]
  - OSTEONECROSIS OF JAW [None]
